FAERS Safety Report 24421262 (Version 1)
Quarter: 2024Q4

REPORT INFORMATION
  Report Type: Spontaneous
  Country: BR (occurrence: BR)
  Receive Date: 20241010
  Receipt Date: 20241010
  Transmission Date: 20250115
  Serious: Yes (Other)
  Sender: JOHNSON AND JOHNSON
  Company Number: BR-JNJFOC-20241015171

PATIENT
  Age: 77 Year

DRUGS (2)
  1. STELARA [Suspect]
     Active Substance: USTEKINUMAB
     Indication: Colitis ulcerative
     Dosage: INDUCTION
     Route: 040
  2. STELARA [Suspect]
     Active Substance: USTEKINUMAB
     Dosage: FIRST MAINTENANCE DOSE
     Route: 058

REACTIONS (1)
  - Deafness [Unknown]
